FAERS Safety Report 21794399 (Version 1)
Quarter: 2022Q4

REPORT INFORMATION
  Report Type: Spontaneous
  Country: US (occurrence: None)
  Receive Date: 20221229
  Receipt Date: 20221229
  Transmission Date: 20230112
  Serious: No
  Sender: FDA-Public Use
  Company Number: 2022A403836

PATIENT
  Sex: Female
  Weight: 147.4 kg

DRUGS (9)
  1. SAPHNELO [Suspect]
     Active Substance: ANIFROLUMAB-FNIA
     Indication: Systemic lupus erythematosus
     Route: 041
     Dates: start: 20221025
  2. ROSUVASTATIN [Suspect]
     Active Substance: ROSUVASTATIN
     Route: 048
     Dates: start: 202003
  3. CHOLESTYRAMINE (PREVALITE) [Concomitant]
     Indication: Bile output
     Dates: start: 2010
  4. PLAQUENIL [Concomitant]
     Active Substance: HYDROXYCHLOROQUINE SULFATE
     Indication: Systemic lupus erythematosus
     Dosage: (2 - 200MG)
     Dates: start: 201802
  5. XANAX [Concomitant]
     Active Substance: ALPRAZOLAM
     Indication: Anxiety
     Dates: start: 202002
  6. XANAX [Concomitant]
     Active Substance: ALPRAZOLAM
     Indication: Insomnia
     Dates: start: 202002
  7. TOPAMAX [Concomitant]
     Active Substance: TOPIRAMATE
     Indication: Migraine
     Dates: start: 202202
  8. HYDROCODONE [Concomitant]
     Active Substance: HYDROCODONE
     Indication: Systemic lupus erythematosus
     Dosage: 7.5/325
     Dates: start: 202001
  9. METHYLPREDNISOLONE [Concomitant]
     Active Substance: METHYLPREDNISOLONE
     Indication: Systemic lupus erythematosus
     Dates: start: 2022

REACTIONS (1)
  - Depressed mood [Recovered/Resolved]
